FAERS Safety Report 9279359 (Version 1)
Quarter: 2013Q2

REPORT INFORMATION
  Report Type: Spontaneous
  Country: US (occurrence: US)
  Receive Date: 20130508
  Receipt Date: 20130508
  Transmission Date: 20140414
  Serious: No
  Sender: FDA-Public Use
  Company Number: US-TEVA-403257USA

PATIENT
  Sex: 0

DRUGS (1)
  1. NUVIGIL [Suspect]
     Dosage: 125-150MG DAILY FOR ABOUT 2 YEARS
     Route: 048

REACTIONS (4)
  - Apathy [Unknown]
  - Dysthymic disorder [Recovered/Resolved]
  - Depression [Unknown]
  - Fatigue [Unknown]
